FAERS Safety Report 8866297 (Version 1)
Quarter: 2012Q4

REPORT INFORMATION
  Report Type: 
  Country: CA (occurrence: CA)
  Receive Date: 20121025
  Receipt Date: 20121025
  Transmission Date: 20130627
  Serious: Yes (Other)
  Sender: FDA-Public Use
  Company Number: CA-ASTRAZENECA-2012SE79302

PATIENT
  Age: 58 Year
  Sex: Female

DRUGS (1)
  1. CRESTOR [Suspect]
     Route: 048
     Dates: start: 200907

REACTIONS (7)
  - Monoplegia [Recovered/Resolved]
  - Areflexia [Recovered/Resolved]
  - Confusional state [Recovered/Resolved]
  - Dyslexia [Recovered/Resolved]
  - Gastrointestinal haemorrhage [Recovered/Resolved]
  - Brain injury [Recovering/Resolving]
  - Pain in extremity [Recovered/Resolved]
